FAERS Safety Report 25350336 (Version 2)
Quarter: 2025Q4

REPORT INFORMATION
  Report Type: Spontaneous
  Country: US (occurrence: US)
  Receive Date: 20250523
  Receipt Date: 20251103
  Transmission Date: 20260117
  Serious: No
  Sender: SANOFI AVENTIS
  Company Number: US-SA-2025SA147261

PATIENT
  Age: 16 Year
  Sex: Male

DRUGS (3)
  1. DUPIXENT [Suspect]
     Active Substance: DUPILUMAB
     Indication: Asthma
     Dosage: 200 MG, QOW
     Route: 058
     Dates: start: 202404
  2. CLARITIN [Suspect]
     Active Substance: LORATADINE
     Dosage: UNK
  3. BROMPHENIRAMINE\PSEUDOEPHEDRINE [Suspect]
     Active Substance: BROMPHENIRAMINE\PSEUDOEPHEDRINE
     Dosage: UNK

REACTIONS (1)
  - Rash [Unknown]
